FAERS Safety Report 11584463 (Version 1)
Quarter: 2015Q4

REPORT INFORMATION
  Report Type: Spontaneous
  Country: US (occurrence: US)
  Receive Date: 20151001
  Receipt Date: 20151001
  Transmission Date: 20160304
  Serious: No
  Sender: FDA-Public Use
  Company Number: US-BIOGENIDEC-2015BI131284

PATIENT

DRUGS (3)
  1. TECFIDERA [Suspect]
     Active Substance: DIMETHYL FUMARATE
     Indication: MULTIPLE SCLEROSIS
  2. TECFIDERA [Suspect]
     Active Substance: DIMETHYL FUMARATE
     Indication: MULTIPLE SCLEROSIS
  3. TECFIDERA [Suspect]
     Active Substance: DIMETHYL FUMARATE
     Indication: MULTIPLE SCLEROSIS
     Dates: start: 201506

REACTIONS (3)
  - Nuclear magnetic resonance imaging abnormal [Unknown]
  - Flushing [Recovered/Resolved]
  - Underdose [Recovered/Resolved]
